FAERS Safety Report 10591043 (Version 1)
Quarter: 2014Q4

REPORT INFORMATION
  Report Type: Spontaneous
  Country: US (occurrence: US)
  Receive Date: 20141118
  Receipt Date: 20141118
  Transmission Date: 20150529
  Serious: Yes (Hospitalization)
  Sender: FDA-Public Use
  Company Number: US-BAYER-2014-167992

PATIENT
  Sex: Male

DRUGS (1)
  1. XOFIGO [Suspect]
     Active Substance: RADIUM RA-223 DICHLORIDE
     Dosage: UNK
     Route: 042
     Dates: start: 20141001, end: 20141001

REACTIONS (8)
  - Diarrhoea [None]
  - Dysstasia [None]
  - Constipation [Recovered/Resolved]
  - Anaemia [None]
  - Weight decreased [None]
  - Vomiting [None]
  - Back pain [None]
  - Asthenia [None]
